FAERS Safety Report 22098269 (Version 3)
Quarter: 2023Q1

REPORT INFORMATION
  Report Type: Report from Study
  Country: AR (occurrence: AR)
  Receive Date: 20230315
  Receipt Date: 20230328
  Transmission Date: 20230417
  Serious: Yes (Death, Hospitalization, Other)
  Sender: FDA-Public Use
  Company Number: AR-002147023-NVSC2023AR059112

PATIENT
  Sex: Female

DRUGS (4)
  1. PIQRAY [Suspect]
     Active Substance: ALPELISIB
     Indication: Breast cancer metastatic
     Dosage: 300 MG, QD
     Route: 048
     Dates: start: 20220914
  2. LETROZOLE [Suspect]
     Active Substance: LETROZOLE
     Indication: Disease progression
     Dosage: UNK
     Route: 065
  3. FULVESTRANT [Suspect]
     Active Substance: FULVESTRANT
     Indication: Product used for unknown indication
     Dosage: 500 MG
     Route: 065
  4. PALBOCICLIB [Concomitant]
     Active Substance: PALBOCICLIB
     Indication: Disease progression
     Dosage: 500 MG (EVERY 28 DAYS)
     Route: 030

REACTIONS (7)
  - Metastases to neck [Fatal]
  - Metastases to skin [Fatal]
  - Metastases to liver [Fatal]
  - Metastases to bone [Fatal]
  - Metastases to lung [Fatal]
  - Breast cancer metastatic [Fatal]
  - Malignant neoplasm progression [Fatal]

NARRATIVE: CASE EVENT DATE: 20220101
